FAERS Safety Report 4370394-4 (Version None)
Quarter: 2004Q2

REPORT INFORMATION
  Report Type: 
  Country: None (occurrence: None)
  Receive Date: 20040603
  Receipt Date: 20040301
  Transmission Date: 20050107
  Serious: No
  Sender: FDA-Public Use
  Company Number: US-BRISTOL-MYERS SQUIBB COMPANY-12520433

PATIENT
  Age: 42 Year
  Sex: Female
  Weight: 66 kg

DRUGS (5)
  1. ABILIFY [Suspect]
     Indication: SCHIZOPHRENIA
     Dosage: 15 MG AM; 10 MG PM
     Route: 048
  2. AMBIEN [Concomitant]
  3. BUSPAR [Concomitant]
  4. ZOLOFT [Concomitant]
  5. HEPTAMINOL [Concomitant]

REACTIONS (1)
  - INSOMNIA [None]
